FAERS Safety Report 21637816 (Version 1)
Quarter: 2022Q4

REPORT INFORMATION
  Report Type: Spontaneous
  Country: US (occurrence: US)
  Receive Date: 20221124
  Receipt Date: 20221124
  Transmission Date: 20230113
  Serious: No
  Sender: FDA-Public Use
  Company Number: US-KERYX BIOPHARMACEUTICALS INC.-2022US009578

PATIENT
  Age: 47 Year
  Sex: Female
  Weight: 91.6 kg

DRUGS (12)
  1. AURYXIA [Suspect]
     Active Substance: TETRAFERRIC TRICITRATE DECAHYDRATE
     Indication: Hyperphosphataemia
     Dosage: 2 GRAM (TABLET), TID WITH MEALS
     Route: 048
     Dates: start: 20220131, end: 20220228
  2. HEPARIN [Concomitant]
     Active Substance: HEPARIN SODIUM
     Indication: Product used for unknown indication
  3. ACETAMINOPHEN [Concomitant]
     Active Substance: ACETAMINOPHEN
     Indication: Pain
     Dosage: 500 MILLIGRAM (CAPLET), Q6H
     Dates: start: 20211206
  4. METHOCARBAMOL [Concomitant]
     Active Substance: METHOCARBAMOL
     Dosage: 750 MILLIGRAM, TID
     Route: 048
     Dates: start: 20211206
  5. CALCIUM ACETATE [Concomitant]
     Active Substance: CALCIUM ACETATE
     Dosage: 667 MILLIGRAM (CAPSULE), TID 2 PER MEAL 3X/DAY AND 1 CAP PER SNACK
     Route: 048
     Dates: start: 20220115
  6. ONDANSETRON [Concomitant]
     Active Substance: ONDANSETRON
     Dosage: 4 MILLIGRAM (TABLET), Q8H
     Dates: start: 20210416
  7. CELEBREX [Concomitant]
     Active Substance: CELECOXIB
     Dosage: 100 MILLIGRAM (CAPSULE), BID
     Route: 048
     Dates: start: 20211206
  8. PANTOPRAZOLE [Concomitant]
     Active Substance: PANTOPRAZOLE
     Dosage: 40 MILLIGRAM (TABLET), QD
     Route: 048
     Dates: start: 20210729
  9. DOCUSATE SODIUM [Concomitant]
     Active Substance: DOCUSATE SODIUM
     Dosage: 1 CAPSULE, BID
     Route: 048
     Dates: start: 20211206
  10. SEVELAMER [Concomitant]
     Active Substance: SEVELAMER
     Dosage: 800 MILLIGRAM
     Route: 048
     Dates: start: 20210729
  11. GABAPENTIN [Concomitant]
     Active Substance: GABAPENTIN
     Dosage: 300 MILLIGRAM, BID
     Route: 048
     Dates: start: 20211206
  12. TUMS                               /00193601/ [Concomitant]
     Dosage: 4 TAB, TID BETWEEN MEALS
     Route: 048
     Dates: start: 20220214

REACTIONS (5)
  - Menstruation irregular [Unknown]
  - Haemoglobin decreased [Unknown]
  - Blood phosphorus increased [Unknown]
  - Faeces discoloured [Unknown]
  - Diarrhoea [Unknown]

NARRATIVE: CASE EVENT DATE: 20220101
